FAERS Safety Report 19272803 (Version 2)
Quarter: 2021Q3

REPORT INFORMATION
  Report Type: Report from Study
  Country: US (occurrence: US)
  Receive Date: 20210518
  Receipt Date: 20210813
  Transmission Date: 20211014
  Serious: Yes (Other)
  Sender: FDA-Public Use
  Company Number: US-JAZZ-2021-US-008599

PATIENT
  Sex: Female

DRUGS (3)
  1. XYREM [Suspect]
     Active Substance: SODIUM OXYBATE
     Indication: CATAPLEXY
     Dosage: DOSE ADJUSTMENT
     Route: 048
     Dates: start: 202009, end: 202009
  2. XYREM [Suspect]
     Active Substance: SODIUM OXYBATE
     Dosage: 4.5 GRAM, BID
     Route: 048
     Dates: start: 202009
  3. XYREM [Suspect]
     Active Substance: SODIUM OXYBATE
     Indication: NARCOLEPSY
     Dosage: 2.25 GRAM, BID
     Route: 048
     Dates: start: 2020, end: 202009

REACTIONS (18)
  - Exostosis [Not Recovered/Not Resolved]
  - Tooth extraction [Unknown]
  - Diabetes mellitus [Not Recovered/Not Resolved]
  - Plantar fasciitis [Not Recovered/Not Resolved]
  - Back pain [Not Recovered/Not Resolved]
  - Nocturia [Not Recovered/Not Resolved]
  - Urinary tract infection fungal [Unknown]
  - Nausea [Unknown]
  - Neck pain [Not Recovered/Not Resolved]
  - Fatigue [Not Recovered/Not Resolved]
  - Bacterial infection [Unknown]
  - Vomiting [Unknown]
  - Condition aggravated [Unknown]
  - Dehydration [Unknown]
  - Hyperhidrosis [Not Recovered/Not Resolved]
  - Pyelonephritis [Not Recovered/Not Resolved]
  - Thirst [Unknown]
  - Diarrhoea [Unknown]
